FAERS Safety Report 5953212-X (Version None)
Quarter: 2008Q4

REPORT INFORMATION
  Report Type: 
  Country: None (occurrence: None)
  Receive Date: 20081114
  Receipt Date: 20081105
  Transmission Date: 20090506
  Serious: Yes (Other)
  Sender: FDA-Public Use
  Company Number: PHHY2008BR27332

PATIENT
  Age: 49 Year
  Sex: Female

DRUGS (1)
  1. ZELMAC [Suspect]
     Dosage: 6 MG, BID
     Route: 048

REACTIONS (4)
  - ABDOMINAL PAIN [None]
  - CONSTIPATION [None]
  - GASTROINTESTINAL NEOPLASM [None]
  - TUMOUR EXCISION [None]
